FAERS Safety Report 10024064 (Version 2)
Quarter: 2014Q2

REPORT INFORMATION
  Report Type: Spontaneous
  Country: CN (occurrence: CN)
  Receive Date: 20140320
  Receipt Date: 20140512
  Transmission Date: 20141212
  Serious: Yes (Hospitalization, Other)
  Sender: FDA-Public Use
  Company Number: CN-PFIZER INC-2014079923

PATIENT
  Age: 43 Year
  Sex: Female

DRUGS (1)
  1. CELECOXIB [Suspect]
     Indication: PERIARTHRITIS
     Dosage: 0.2 G, 2X/DAY
     Route: 048
     Dates: start: 20130401

REACTIONS (5)
  - Pancreatitis acute [Recovered/Resolved]
  - Abdominal pain upper [Recovered/Resolved]
  - Nausea [Recovered/Resolved]
  - Vomiting [Recovered/Resolved]
  - Abdominal distension [Recovered/Resolved]
